FAERS Safety Report 10953795 (Version 2)
Quarter: 2015Q2

REPORT INFORMATION
  Report Type: Spontaneous
  Country: DK (occurrence: DK)
  Receive Date: 20150325
  Receipt Date: 20150505
  Transmission Date: 20150821
  Serious: Yes (Death)
  Sender: FDA-Public Use
  Company Number: DK-PFIZER INC-2015096552

PATIENT
  Age: 62 Year
  Sex: Male

DRUGS (1)
  1. SUTENT [Suspect]
     Active Substance: SUNITINIB MALATE
     Indication: TRANSITIONAL CELL CANCER OF RENAL PELVIS AND URETER METASTATIC
     Dosage: 37.5 MG X 1 FOR 4 WEEKS THEN 2 WEEKS OF INTERMISSION
     Route: 048
     Dates: start: 20130715

REACTIONS (2)
  - Product use issue [Unknown]
  - Aortic dissection [Fatal]

NARRATIVE: CASE EVENT DATE: 20141117
